FAERS Safety Report 14095368 (Version 3)
Quarter: 2018Q2

REPORT INFORMATION
  Report Type: Spontaneous
  Country: AT (occurrence: AT)
  Receive Date: 20171016
  Receipt Date: 20180523
  Transmission Date: 20180711
  Serious: Yes (Hospitalization, Other)
  Sender: FDA-Public Use
  Company Number: AT-PFIZER INC-2017439700

PATIENT
  Age: 60 Year
  Sex: Male

DRUGS (18)
  1. GEROLAMIC [Concomitant]
     Dosage: 150 MG, UNK
     Dates: start: 20170728
  2. LITHIUM. [Concomitant]
     Active Substance: LITHIUM
     Dosage: 75 MG, 1X/DAY
  3. EFECTIN ER [Suspect]
     Active Substance: VENLAFAXINE HYDROCHLORIDE
     Dosage: 75 MG, UNK
     Dates: start: 20170622, end: 20170626
  4. EFECTIN ER [Interacting]
     Active Substance: VENLAFAXINE HYDROCHLORIDE
     Dosage: 225 MG, UNK
     Dates: start: 20170705, end: 20170719
  5. WELLBUTRIN [Interacting]
     Active Substance: BUPROPION HYDROCHLORIDE
     Dosage: 150 MG, UNK
     Dates: start: 20170706, end: 20170713
  6. ABILIFY [Concomitant]
     Active Substance: ARIPIPRAZOLE
     Dosage: 10 MG, UNK
     Dates: start: 20170620, end: 20170719
  7. EFECTIN ER [Interacting]
     Active Substance: VENLAFAXINE HYDROCHLORIDE
     Dosage: 150 MG, UNK
     Route: 048
     Dates: start: 20170627, end: 20170704
  8. GEROLAMIC [Concomitant]
     Dosage: 125 MG, UNK
     Dates: start: 20170717, end: 20170727
  9. GEROLAMIC [Concomitant]
     Dosage: 100 MG, UNK
     Dates: start: 20170710, end: 20170716
  10. ABILIFY [Concomitant]
     Active Substance: ARIPIPRAZOLE
     Dosage: 20 MG, UNK
     Route: 048
     Dates: start: 20170720
  11. DOMINAL (PROTHIPENDYL HYDROCHLORIDE) [Concomitant]
     Active Substance: PROTHIPENDYL HYDROCHLORIDE
     Dosage: 80 MG, UNK
     Dates: start: 20170719, end: 20170829
  12. TEMESTA /00273201/ [Concomitant]
     Active Substance: LORAZEPAM
     Indication: AGITATION
     Dosage: 5 MG, UNK
     Route: 065
  13. ADASUVE [Concomitant]
     Active Substance: LOXAPINE
     Indication: AGITATION
     Route: 055
  14. GEROLAMIC [Concomitant]
     Dosage: 25 MG, UNK
     Dates: start: 20170620, end: 20170630
  15. CONVULEX [Concomitant]
     Active Substance: VALPROIC ACID
     Dosage: 1500 MG, 1X/DAY
  16. GEROLAMIC [Concomitant]
     Dosage: 50 MG, UNK
     Dates: start: 20170701, end: 20170709
  17. TEMESTA /00273201/ [Concomitant]
     Active Substance: LORAZEPAM
     Dosage: 7.5 MG, QD
     Route: 065
  18. LITHIUM. [Concomitant]
     Active Substance: LITHIUM
     Dosage: 675 MG, 1X/DAY

REACTIONS (2)
  - Drug interaction [Recovered/Resolved]
  - Mania [Recovered/Resolved]

NARRATIVE: CASE EVENT DATE: 20170718
